FAERS Safety Report 5278953-1 (Version None)
Quarter: 2007Q1

REPORT INFORMATION
  Report Type: 
  Country: None (occurrence: None)
  Receive Date: 20070327
  Receipt Date: 20070327
  Transmission Date: 20070707
  Serious: Yes (Life-Threatening, Hospitalization)
  Sender: FDA-Public Use
  Company Number: None

PATIENT
  Age: 41 Year
  Sex: Female
  Weight: 120.2032 kg

DRUGS (1)
  1. TOPAMAX [Suspect]
     Indication: WEIGHT CONTROL
     Dosage: 100MG TWICE DAILY PO
     Route: 048
     Dates: start: 20051002, end: 20051014

REACTIONS (13)
  - BLOOD POTASSIUM DECREASED [None]
  - CATARACT [None]
  - FEELING ABNORMAL [None]
  - FEELING DRUNK [None]
  - HYPOAESTHESIA [None]
  - INSOMNIA [None]
  - MIOSIS [None]
  - PANIC ATTACK [None]
  - PRURITUS [None]
  - PUPIL FIXED [None]
  - SCREAMING [None]
  - VERTIGO [None]
  - VISION BLURRED [None]
